FAERS Safety Report 5487933-2 (Version None)
Quarter: 2007Q3

REPORT INFORMATION
  Report Type: 
  Country: None (occurrence: None)
  Receive Date: 20070925
  Receipt Date: 20070622
  Transmission Date: 20080115
  Serious: No
  Sender: FDA-Public Use
  Company Number: 2007US001477

PATIENT
  Age: 67 Year
  Sex: Female

DRUGS (6)
  1. VESICARE [Suspect]
     Indication: HYPERTONIC BLADDER
     Dosage: 5 MG, UID/QD
  2. ENABLEX [Suspect]
     Indication: DRUG USE FOR UNKNOWN INDICATION
  3. RELAFEN [Concomitant]
  4. VERAPAMIL (VERAPAMIL HYDROCHLORIDE) [Concomitant]
  5. PEPCID [Concomitant]
  6. EXELON [Concomitant]

REACTIONS (4)
  - DRUG INEFFECTIVE [None]
  - NOCTURIA [None]
  - POLLAKIURIA [None]
  - URINE FLOW DECREASED [None]
